FAERS Safety Report 7656499-0 (Version None)
Quarter: 2011Q3

REPORT INFORMATION
  Report Type: 
  Country: None (occurrence: None)
  Receive Date: 20110804
  Receipt Date: 20100819
  Transmission Date: 20111222
  Serious: No
  Sender: FDA-Public Use
  Company Number: US-BAUSCH-2010BL004619

PATIENT
  Age: 35 Year
  Sex: Female
  Weight: 43 kg

DRUGS (5)
  1. OPCON-A [Suspect]
     Route: 047
     Dates: start: 20100819, end: 20100819
  2. OPCON-A [Suspect]
     Indication: OCULAR HYPERAEMIA
     Route: 047
     Dates: start: 20100818, end: 20100818
  3. OPCON-A [Suspect]
     Route: 047
     Dates: start: 20100819, end: 20100819
  4. OPCON-A [Suspect]
     Indication: EYE PRURITUS
     Route: 047
     Dates: start: 20100818, end: 20100818
  5. FLUOROMETHOLONE [Concomitant]
     Indication: CONJUNCTIVITIS INFECTIVE
     Route: 047
     Dates: start: 20100808

REACTIONS (1)
  - DRUG INEFFECTIVE [None]
